FAERS Safety Report 13160861 (Version 2)
Quarter: 2017Q1

REPORT INFORMATION
  Report Type: Spontaneous
  Country: US (occurrence: US)
  Receive Date: 20170130
  Receipt Date: 20170214
  Transmission Date: 20170428
  Serious: Yes (Hospitalization)
  Sender: FDA-Public Use
  Company Number: US-TAIHO ONCOLOGY INC-EU-2017-00152

PATIENT
  Age: 50 Year
  Sex: Female

DRUGS (16)
  1. PROCHLORPERAZINE. [Concomitant]
     Active Substance: PROCHLORPERAZINE
     Dosage: NI
  2. ROPINIROLE. [Concomitant]
     Active Substance: ROPINIROLE
     Dosage: NI
  3. KLOR-CON [Concomitant]
     Active Substance: POTASSIUM CHLORIDE
     Dosage: NI
  4. LONSURF [Suspect]
     Active Substance: TIPIRACIL HYDROCHLORIDE\TRIFLURIDINE
     Indication: RECTOSIGMOID CANCER
     Dosage: RESTARTED ON 26/JAN/2017
     Route: 048
     Dates: start: 20161111
  5. FERROUS SULFATE. [Concomitant]
     Active Substance: FERROUS SULFATE
     Dosage: NI
  6. ZOFRAN [Concomitant]
     Active Substance: ONDANSETRON HYDROCHLORIDE
     Dosage: NI
  7. SALBUTAMOL [Concomitant]
     Active Substance: ALBUTEROL
     Dosage: NI
  8. METFORMIN [Concomitant]
     Active Substance: METFORMIN HYDROCHLORIDE
     Dosage: NI
  9. PANTOPRAZOLE [Concomitant]
     Active Substance: PANTOPRAZOLE SODIUM
     Dosage: NI
  10. VENTOLIN HFA [Concomitant]
     Active Substance: ALBUTEROL SULFATE
     Dosage: NI
  11. OXYCODONE [Concomitant]
     Active Substance: OXYCODONE
     Dosage: NI
  12. WARFARIN [Concomitant]
     Active Substance: WARFARIN
     Dosage: NI
  13. METOPROLOL. [Concomitant]
     Active Substance: METOPROLOL
     Dosage: NI
  14. LOSARTAN POTASSIUM. [Concomitant]
     Active Substance: LOSARTAN POTASSIUM
     Dosage: NI
  15. MAG OXIDE [Concomitant]
     Active Substance: MAGNESIUM OXIDE
     Dosage: NI
  16. TYLENOL [Concomitant]
     Active Substance: ACETAMINOPHEN
     Dosage: NI

REACTIONS (1)
  - Pneumonia [Recovered/Resolved]

NARRATIVE: CASE EVENT DATE: 201701
